FAERS Safety Report 14675339 (Version 4)
Quarter: 2020Q3

REPORT INFORMATION
  Report Type: Report from Study
  Country: DE (occurrence: DE)
  Receive Date: 20180323
  Receipt Date: 20181017
  Transmission Date: 20201104
  Serious: Yes (Hospitalization)
  Sender: FDA-Public Use
  Company Number: PHHO2018DE003676

PATIENT
  Age: 68 Year
  Sex: Male

DRUGS (4)
  1. PDR001 [Suspect]
     Active Substance: SPARTALIZUMAB
     Dosage: 300 MG, Q3W
     Route: 041
     Dates: start: 20180425
  2. CARBOPLATIN. [Suspect]
     Active Substance: CARBOPLATIN
     Indication: NON-SMALL CELL LUNG CANCER METASTATIC
     Dosage: 750 MG, Q3W
     Route: 041
     Dates: start: 20171215
  3. PACLITAXEL. [Suspect]
     Active Substance: PACLITAXEL
     Indication: NON-SMALL CELL LUNG CANCER METASTATIC
     Dosage: 400 MG, Q3W
     Route: 041
     Dates: start: 20171215
  4. PDR001 [Suspect]
     Active Substance: SPARTALIZUMAB
     Indication: NON-SMALL CELL LUNG CANCER METASTATIC
     Dosage: 300 MG, Q3W
     Route: 042
     Dates: start: 20171215

REACTIONS (1)
  - Dyspnoea [Recovering/Resolving]

NARRATIVE: CASE EVENT DATE: 20180312
